FAERS Safety Report 17053099 (Version 1)
Quarter: 2019Q4

REPORT INFORMATION
  Report Type: Spontaneous
  Country: US (occurrence: US)
  Receive Date: 20191021
  Receipt Date: 20191021
  Transmission Date: 20200122
  Serious: Yes (Hospitalization)
  Sender: FDA-Public Use
  Company Number: None

PATIENT
  Age: 13 Year
  Sex: Female

DRUGS (15)
  1. SOD CHL 7% 4ML [Suspect]
     Active Substance: SODIUM CHLORIDE
     Indication: CYSTIC FIBROSIS
     Route: 055
     Dates: start: 20140922
  2. COLISTIMETHATE [Concomitant]
     Active Substance: COLISTIMETHATE SODIUM
  3. VITAMIN D3 [Concomitant]
     Active Substance: CHOLECALCIFEROL
  4. ALBUTEROL. [Concomitant]
     Active Substance: ALBUTEROL
  5. AQUADEK [Concomitant]
  6. CYPROHEPTADINE. [Concomitant]
     Active Substance: CYPROHEPTADINE
  7. FLUTICASONE NASAL [Concomitant]
     Active Substance: FLUTICASONE
  8. FLUTICASONE/SALM [Concomitant]
  9. PERTZYME [Concomitant]
  10. ENSURE CLAR [Concomitant]
  11. FERROUS SUF DROPS [Concomitant]
  12. PREDNISONE. [Concomitant]
     Active Substance: PREDNISONE
  13. CAYSTON [Concomitant]
     Active Substance: AZTREONAM
  14. LEVOFLOXACIN. [Concomitant]
     Active Substance: LEVOFLOXACIN
  15. PULMOZYME [Concomitant]
     Active Substance: DORNASE ALFA

REACTIONS (1)
  - Infective pulmonary exacerbation of cystic fibrosis [None]

NARRATIVE: CASE EVENT DATE: 20191013
